FAERS Safety Report 20364339 (Version 1)
Quarter: 2022Q1

REPORT INFORMATION
  Report Type: Spontaneous
  Country: US (occurrence: None)
  Receive Date: 20220121
  Receipt Date: 20220121
  Transmission Date: 20220423
  Serious: Yes (Death)
  Sender: FDA-Public Use
  Company Number: None

PATIENT
  Sex: Male

DRUGS (1)
  1. FORTEO [Suspect]
     Active Substance: TERIPARATIDE
     Indication: Senile osteoporosis
     Dosage: OTHER QUANTITY : 20 MCG;?FREQUENCY : DAILY;?
     Route: 058
     Dates: start: 20200611, end: 20220119

REACTIONS (1)
  - Cerebrovascular accident [None]
